FAERS Safety Report 5073154-4 (Version None)
Quarter: 2006Q3

REPORT INFORMATION
  Report Type: 
  Country: None (occurrence: None)
  Receive Date: 20060802
  Receipt Date: 20060727
  Transmission Date: 20061208
  Serious: Yes (Hospitalization, Other)
  Sender: FDA-Public Use
  Company Number: HQWYE916529DEC03

PATIENT
  Age: 54 Year
  Sex: Male
  Weight: 62.65 kg

DRUGS (8)
  1. ROFERON-A [Suspect]
     Indication: METASTATIC RENAL CELL CARCINOMA
     Dosage: 9 MU 3 TIMES/WEEK SUBCUTANEOUS ; 18 MU 3 TIMES/WK, SUBCUTANEOUS
     Route: 058
     Dates: end: 20031121
  2. ROFERON-A [Suspect]
     Indication: METASTATIC RENAL CELL CARCINOMA
     Dosage: 9 MU 3 TIMES/WEEK SUBCUTANEOUS ; 18 MU 3 TIMES/WK, SUBCUTANEOUS
     Route: 058
     Dates: start: 20031121, end: 20031222
  3. DARVOCET-N 50 [Concomitant]
  4. COUMADIN [Concomitant]
  5. LORTAB [Concomitant]
  6. PERI-COLACE [Concomitant]
  7. COMPAZINE (PROCHLORPERAZINE SODIUM) [Concomitant]
  8. ZOFRAN [Concomitant]

REACTIONS (9)
  - ABDOMINAL PAIN [None]
  - BLOOD SODIUM DECREASED [None]
  - CHOLELITHIASIS [None]
  - DEHYDRATION [None]
  - LYMPHADENOPATHY [None]
  - NAUSEA [None]
  - OEDEMA PERIPHERAL [None]
  - VOMITING [None]
  - WEIGHT INCREASED [None]
